FAERS Safety Report 12721282 (Version 1)
Quarter: 2016Q3

REPORT INFORMATION
  Report Type: Spontaneous
  Country: BR (occurrence: BR)
  Receive Date: 20160907
  Receipt Date: 20160907
  Transmission Date: 20161109
  Serious: Yes (Death, Other)
  Sender: FDA-Public Use
  Company Number: BR-PFIZER INC-2016418597

PATIENT
  Age: 60 Year
  Sex: Male

DRUGS (3)
  1. ALPRAZOLAM. [Concomitant]
     Active Substance: ALPRAZOLAM
     Indication: PANIC DISORDER
     Dosage: ONE TABLET (1 MG), DAILY
     Route: 048
  2. FRONTAL [Suspect]
     Active Substance: ALPRAZOLAM
     Indication: PANIC DISORDER
     Dosage: ONE TABLET (2 MG), DAILY
     Route: 048
  3. PAROXETINE HYDROCHLORIDE. [Concomitant]
     Active Substance: PAROXETINE HYDROCHLORIDE
     Dosage: 1 TABLET (UNSPECIFIED DOSE), DAILY
     Route: 048

REACTIONS (3)
  - Pneumonia [Unknown]
  - Cardiogenic shock [Fatal]
  - Myocardial infarction [Fatal]
